FAERS Safety Report 7124244-3 (Version None)
Quarter: 2010Q4

REPORT INFORMATION
  Report Type: 
  Country: None (occurrence: None)
  Receive Date: 20101126
  Receipt Date: 20101116
  Transmission Date: 20110411
  Serious: Yes (Death, Other)
  Sender: FDA-Public Use
  Company Number: GXKR2010CH12988

PATIENT
  Age: 83 Year
  Sex: Female

DRUGS (2)
  1. AMIODARONE (NGX) [Suspect]
     Dosage: 100 MG, QD
  2. AZITHROMYCIN [Suspect]
     Indication: RESPIRATORY TRACT INFECTION
     Dosage: UNK

REACTIONS (10)
  - BUNDLE BRANCH BLOCK RIGHT [None]
  - CARDIAC ARREST [None]
  - CARDIOVERSION [None]
  - CIRCULATORY COLLAPSE [None]
  - COMA [None]
  - GENERAL PHYSICAL HEALTH DETERIORATION [None]
  - HYPOTHYROIDISM [None]
  - UNRESPONSIVE TO STIMULI [None]
  - VENTRICULAR ARRHYTHMIA [None]
  - VENTRICULAR FIBRILLATION [None]
